FAERS Safety Report 8838166 (Version 1)
Quarter: 2012Q4

REPORT INFORMATION
  Report Type: 
  Country: US (occurrence: US)
  Receive Date: 20121012
  Receipt Date: 20121012
  Transmission Date: 20130627
  Serious: No
  Sender: FDA-Public Use
  Company Number: US-PFIZER INC-2012251985

PATIENT
  Age: 52 Year
  Sex: Male
  Weight: 83.45 kg

DRUGS (2)
  1. CADUET [Suspect]
     Indication: BLOOD CHOLESTEROL INCREASED
     Dosage: UNK
     Route: 048
  2. CADUET [Suspect]
     Indication: BLOOD PRESSURE ABNORMAL

REACTIONS (1)
  - Rash [Unknown]
